FAERS Safety Report 12353049 (Version 1)
Quarter: 2016Q2

REPORT INFORMATION
  Report Type: Spontaneous
  Country: US (occurrence: US)
  Receive Date: 20160510
  Receipt Date: 20160510
  Transmission Date: 20160815
  Serious: Yes (Other)
  Sender: FDA-Public Use
  Company Number: US-MDT-ADR-2015-02365

PATIENT
  Age: 47 Year
  Sex: Female

DRUGS (1)
  1. LIORESAL [Suspect]
     Active Substance: BACLOFEN
     Dosage: 1200 MCG/DAY
     Route: 037

REACTIONS (3)
  - Drug withdrawal syndrome [Recovered/Resolved]
  - Pain [Recovered/Resolved]
  - Muscle spasticity [Recovered/Resolved]
